FAERS Safety Report 6210357-7 (Version None)
Quarter: 2009Q2

REPORT INFORMATION
  Report Type: 
  Country: None (occurrence: None)
  Receive Date: 20090529
  Receipt Date: 20090529
  Transmission Date: 20091009
  Serious: Yes (Other)
  Sender: FDA-Public Use
  Company Number: None

PATIENT
  Age: 88 Year
  Sex: Female
  Weight: 61.2356 kg

DRUGS (1)
  1. QUETIAPINE FUMARATE [Suspect]
     Indication: SLEEP DISORDER
     Dosage: 1-2 TABS AT BEDTIME PO
     Route: 048
     Dates: start: 20090527, end: 20090527

REACTIONS (3)
  - ASTHENIA [None]
  - DYSKINESIA [None]
  - MUSCLE SPASMS [None]
